FAERS Safety Report 20035039 (Version 7)
Quarter: 2022Q2

REPORT INFORMATION
  Report Type: Report from Study
  Country: DE (occurrence: DE)
  Receive Date: 20211104
  Receipt Date: 20220608
  Transmission Date: 20220721
  Serious: Yes (Other)
  Sender: FDA-Public Use
  Company Number: DE-ROCHE-2745146

PATIENT
  Age: 57 Year
  Sex: Female
  Weight: 59 kg

DRUGS (18)
  1. ZOLEDRONIC ACID [Suspect]
     Active Substance: ZOLEDRONIC ACID
     Indication: Metastases to bone
     Dosage: UNK UNK, Q28D (2ND DOSE ON 16/DEC/2020 AND 3RD DOSE ON 13/JAN/2021)
     Dates: start: 20201118
  2. TRASTUZUMAB [Suspect]
     Active Substance: TRASTUZUMAB
     Indication: Breast cancer
     Dosage: DATE OF LAST DOSE (336 MG) APPLICATION PRIOR EVENT: 10/DEC/2020
     Route: 041
     Dates: start: 20201210, end: 20210328
  3. TRASTUZUMAB [Suspect]
     Active Substance: TRASTUZUMAB
     Dosage: 336 MILLIGRAM (DATE OF MOST RECENT DOSE PRIOR TO AE 20/JUL/2021:326 MG)
     Route: 041
     Dates: start: 20210518
  4. PERTUZUMAB [Suspect]
     Active Substance: PERTUZUMAB
     Indication: Breast cancer
     Dosage: 420 MILLIGRAM (DATE OF DOSE (420 MG) LAST APPLICATION PRIOR EVENT: 10/DEC/2020)
     Dates: start: 20201210, end: 20210328
  5. PERTUZUMAB [Suspect]
     Active Substance: PERTUZUMAB
     Dosage: DATE OF MOST RECENT DOSE PRIOR TO AE 20/JUL/2021: 420 MG
     Dates: start: 20210518
  6. DOCETAXEL [Suspect]
     Active Substance: DOCETAXEL
     Indication: Breast cancer
     Dosage: 120 MILLIGRAM (DATE OF LAST DOSE (118 MG) APPLICATION PRIOR EVENT 10/DEC/2020 DATE OF LAST DOSE (118
     Dates: start: 20201118, end: 20210104
  7. DEXAMETHASONE [Concomitant]
     Active Substance: DEXAMETHASONE
     Dosage: 32 MILLIGRAM
     Route: 048
     Dates: start: 20201117, end: 20210106
  8. DEXAMETHASONE [Concomitant]
     Active Substance: DEXAMETHASONE
     Dosage: 8 MILLIGRAM
     Route: 042
     Dates: start: 20201118, end: 20210104
  9. BISOPROLOL [Concomitant]
     Active Substance: BISOPROLOL
     Dosage: 2.5 MILLIGRAM, BID
     Route: 048
     Dates: start: 20210709
  10. CALCIUM\CHOLECALCIFEROL [Concomitant]
     Active Substance: CALCIUM\CHOLECALCIFEROL
     Dosage: CALCIUM 500 MG / VITAMIN D 400 IU DAILY
     Route: 048
     Dates: start: 20201118
  11. CALCIUM\CHOLECALCIFEROL [Concomitant]
     Active Substance: CALCIUM\CHOLECALCIFEROL
     Dosage: 400 INTERNATIONAL UNIT, QD
     Route: 048
     Dates: start: 20201118
  12. ELIQUIS [Concomitant]
     Active Substance: APIXABAN
     Dosage: 5 MILLIGRAM, BID (09-JUL-2021)
     Route: 048
  13. OMEPRAZOLE [Concomitant]
     Active Substance: OMEPRAZOLE
     Dosage: 20 MILLIGRAM (04-JAN-2021)
     Route: 048
     Dates: end: 20210109
  14. Gynomunal [Concomitant]
     Dosage: 2.5 MILLIGRAM (08-FEB-2021)
     Route: 061
     Dates: end: 20210222
  15. METAMIZOLE [Concomitant]
     Active Substance: METAMIZOLE
     Dosage: 500 MILLIGRAM (04-JAN-2021)
     Route: 048
     Dates: end: 20210109
  16. Bepanthen [Concomitant]
     Dosage: UNK (22-JUN-2021)
     Route: 061
  17. DIMETHINDENE MALEATE [Concomitant]
     Active Substance: DIMETHINDENE MALEATE
     Dosage: 4 MILLIGRAM (18-NOV-2020)
     Route: 042
     Dates: end: 20210104
  18. SEA SALT [Concomitant]
     Active Substance: SEA SALT
     Dosage: UNK, BID (26-OCT-2021)
     Route: 045

REACTIONS (11)
  - Atrial fibrillation [Recovered/Resolved]
  - Osteochondrosis [Not Recovered/Not Resolved]
  - Dry skin [Not Recovered/Not Resolved]
  - Vulvovaginal dryness [Recovered/Resolved]
  - Left ventricular dysfunction [Recovered/Resolved]
  - Dysgeusia [Recovered/Resolved]
  - Anaemia [Recovered/Resolved]
  - Back pain [Not Recovered/Not Resolved]
  - Abdominal pain upper [Recovered/Resolved]
  - Dizziness [Not Recovered/Not Resolved]
  - Chest pain [Recovered/Resolved]

NARRATIVE: CASE EVENT DATE: 20201217
